FAERS Safety Report 7531487-3 (Version None)
Quarter: 2011Q2

REPORT INFORMATION
  Report Type: 
  Country: None (occurrence: None)
  Receive Date: 20110608
  Receipt Date: 20110527
  Transmission Date: 20111010
  Serious: Yes (Hospitalization)
  Sender: FDA-Public Use
  Company Number: US-AMGEN-KDL260848

PATIENT
  Age: 64 Year
  Sex: Male

DRUGS (5)
  1. BLINDED EPOETIN ALFA [Suspect]
     Indication: MYOCARDIAL INFARCTION
     Dosage: 60000 IU, UNK
     Route: 042
     Dates: start: 20080110, end: 20080110
  2. PLACEBO [Suspect]
     Indication: MYOCARDIAL INFARCTION
     Dosage: 60000 IU, UNK
     Route: 042
     Dates: start: 20080110, end: 20080110
  3. ABICIXIMAB [Concomitant]
     Dosage: 22.2 A?G, UNK
     Route: 040
     Dates: start: 20080110
  4. CLOPIDOGREL BISULFATE [Concomitant]
     Dosage: 600 MG, UNK
     Dates: start: 20080110, end: 20080110
  5. SODIUM NITROPRUSSIDE [Concomitant]
     Dosage: 300 A?G, UNK
     Dates: start: 20080110, end: 20080110

REACTIONS (1)
  - THROMBOSIS [None]
